FAERS Safety Report 5366692-8 (Version None)
Quarter: 2007Q2

REPORT INFORMATION
  Report Type: 
  Country: None (occurrence: None)
  Receive Date: 20070622
  Receipt Date: 20060531
  Transmission Date: 20071010
  Serious: No
  Sender: FDA-Public Use
  Company Number: US-ASTRAZENECA-2006UW10535

PATIENT
  Sex: Male

DRUGS (2)
  1. RHINOCORT [Suspect]
     Dosage: 2 SPRAYS AM, 1 SPRAY PM
     Route: 045
  2. CLARINEX [Concomitant]

REACTIONS (3)
  - PHARYNGOLARYNGEAL PAIN [None]
  - PRURITUS [None]
  - RHINORRHOEA [None]
